FAERS Safety Report 6006517-0 (Version None)
Quarter: 2008Q4

REPORT INFORMATION
  Report Type: 
  Country: None (occurrence: None)
  Receive Date: 20081217
  Receipt Date: 20081211
  Transmission Date: 20090506
  Serious: Yes (Death, Hospitalization, Other)
  Sender: FDA-Public Use
  Company Number: GB-BAUSCH-2008BL005264

PATIENT
  Age: 14 Month
  Sex: Male

DRUGS (5)
  1. PREDNISOLONE [Suspect]
     Indication: NEPHROTIC SYNDROME
  2. CYCLOSPORINE [Suspect]
     Indication: NEPHROTIC SYNDROME
  3. ENALAPRIL MALEATE [Concomitant]
  4. AMLODIPINE [Concomitant]
  5. ATENOLOL [Concomitant]

REACTIONS (3)
  - DRUG INEFFECTIVE [None]
  - PANCREATITIS [None]
  - RENAL FAILURE CHRONIC [None]
